FAERS Safety Report 14678625 (Version 1)
Quarter: 2018Q1

REPORT INFORMATION
  Report Type: Spontaneous
  Country: FR (occurrence: FR)
  Receive Date: 20180326
  Receipt Date: 20180326
  Transmission Date: 20180509
  Serious: Yes (Other)
  Sender: FDA-Public Use
  Company Number: FR-MERCK KGAA-2044492

PATIENT
  Age: 70 Year
  Sex: Female

DRUGS (1)
  1. NOVOTHYROX [Suspect]
     Active Substance: LEVOTHYROXINE SODIUM
     Indication: PRODUCT USED FOR UNKNOWN INDICATION
     Dates: end: 2017

REACTIONS (21)
  - Fatigue [None]
  - C-reactive protein increased [None]
  - Vaginal discharge [None]
  - Gamma-glutamyltransferase increased [None]
  - Myalgia [None]
  - Arthralgia [None]
  - Decubitus ulcer [None]
  - Gait disturbance [None]
  - Dysstasia [None]
  - Loss of personal independence in daily activities [None]
  - Crying [None]
  - Irritability [None]
  - Asthenia [None]
  - Gastrointestinal pain [None]
  - Skin irritation [None]
  - Blood pressure increased [None]
  - Sleep disorder [None]
  - Hypertension [None]
  - Depression [None]
  - Insomnia [None]
  - Diarrhoea [None]

NARRATIVE: CASE EVENT DATE: 20170209
